FAERS Safety Report 11517897 (Version 1)
Quarter: 2015Q3

REPORT INFORMATION
  Report Type: Spontaneous
  Country: US (occurrence: US)
  Receive Date: 20150917
  Receipt Date: 20150917
  Transmission Date: 20151125
  Serious: No
  Sender: FDA-Public Use
  Company Number: US-RB-077061-15

PATIENT

DRUGS (2)
  1. MUCINEX MAXIMUM STRENGTH [Suspect]
     Active Substance: GUAIFENESIN
     Indication: PNEUMONIA
  2. MUCINEX MAXIMUM STRENGTH [Suspect]
     Active Substance: GUAIFENESIN
     Indication: RESPIRATORY TRACT CONGESTION
     Dosage: 1200MG. HE TOOK PRODUCT LAST ABOUT A WEEK AGO (??/APR/2015),BID
     Route: 065

REACTIONS (2)
  - Unevaluable event [Unknown]
  - Product use issue [Unknown]
